FAERS Safety Report 5270155-8 (Version None)
Quarter: 2007Q1

REPORT INFORMATION
  Report Type: 
  Country: None (occurrence: None)
  Receive Date: 20070314
  Receipt Date: 20070227
  Transmission Date: 20070707
  Serious: Yes (Other)
  Sender: FDA-Public Use
  Company Number: 2007BL000639

PATIENT
  Age: 74 Year
  Sex: Male
  Weight: 80 kg

DRUGS (2)
  1. TROPICAMIDE [Suspect]
     Indication: MYDRIASIS
     Dosage: 2 DOSE FORM; ONCE A DAY; OPHTHALMIC
     Route: 047
     Dates: start: 20070202, end: 20070202
  2. TAMSULOSIN HCL [Suspect]
     Indication: PROSTATISM
     Dosage: 400 MICROGRAMS; UNKNOWN; ORAL
     Route: 048

REACTIONS (2)
  - ANGLE CLOSURE GLAUCOMA [None]
  - FLOPPY IRIS SYNDROME [None]
